FAERS Safety Report 15335342 (Version 4)
Quarter: 2018Q4

REPORT INFORMATION
  Report Type: Spontaneous
  Country: HR (occurrence: HR)
  Receive Date: 20180830
  Receipt Date: 20181123
  Transmission Date: 20190204
  Serious: Yes (Hospitalization)
  Sender: FDA-Public Use
  Company Number: PHHY2018HR079926

PATIENT
  Age: 53 Year
  Sex: Male

DRUGS (11)
  1. CLONAZEPAM. [Concomitant]
     Active Substance: CLONAZEPAM
     Indication: SCHIZOPHRENIA
     Dosage: 2 MG, QD
     Route: 051
  2. CLOZAPINE. [Concomitant]
     Active Substance: CLOZAPINE
     Dosage: 50 MG, UNK
     Route: 065
  3. CLOZAPINE. [Concomitant]
     Active Substance: CLOZAPINE
     Dosage: 25 MG 0,0,1
  4. CLOZAPINE. [Concomitant]
     Active Substance: CLOZAPINE
     Indication: SCHIZOPHRENIA
     Dosage: 25 MG, QHS
     Route: 065
  5. FLUPHENAZINE [Suspect]
     Active Substance: FLUPHENAZINE
     Dosage: 3 MG, UNK
     Route: 065
  6. FLUPHENAZINE [Suspect]
     Active Substance: FLUPHENAZINE
     Dosage: 2.5 MG, BID
     Route: 065
  7. SULPIRIDA [Concomitant]
     Indication: SCHIZOPHRENIA
     Dosage: 200 MG, BID (1, 1, 0 TABLET)
     Route: 065
  8. QUETIAPINE. [Suspect]
     Active Substance: QUETIAPINE
     Indication: SCHIZOPHRENIA
     Dosage: (200 MG OF QUETIAPINE 1/2, 1/2, 1 TABLET)
     Route: 048
  9. DIAZEPAM. [Concomitant]
     Active Substance: DIAZEPAM
     Indication: PRODUCT USED FOR UNKNOWN INDICATION
     Dosage: 5 MG TID (3 X 1 TABLETS)
     Route: 065
  10. DIAZEPAM. [Concomitant]
     Active Substance: DIAZEPAM
     Dosage: 5 MG 3X1
  11. FLUPHENAZINE [Suspect]
     Active Substance: FLUPHENAZINE
     Indication: SCHIZOPHRENIA
     Dosage: 2.5 MG, TID
     Route: 065

REACTIONS (4)
  - Musculoskeletal chest pain [Unknown]
  - Disease progression [Unknown]
  - Hepatic enzyme increased [Recovering/Resolving]
  - Drug-induced liver injury [Recovered/Resolved]

NARRATIVE: CASE EVENT DATE: 201608
